FAERS Safety Report 8155669-5 (Version None)
Quarter: 2012Q1

REPORT INFORMATION
  Report Type: 
  Country: None (occurrence: None)
  Receive Date: 20120222
  Receipt Date: 20120216
  Transmission Date: 20120608
  Serious: No
  Sender: FDA-Public Use
  Company Number: US-PFIZER INC-2012035044

PATIENT
  Sex: Female
  Weight: 102.5 kg

DRUGS (9)
  1. LYRICA [Suspect]
     Indication: NEURALGIA
  2. OMEPRAZOLE [Concomitant]
     Dosage: UNK
  3. LYRICA [Suspect]
     Indication: ARTHRALGIA
     Dosage: 75 MG, 1X/DAY
     Route: 048
  4. LYRICA [Suspect]
     Indication: BACK PAIN
  5. HYDROCHLOROTHIAZIDE [Concomitant]
     Indication: HYPERTENSION
     Dosage: UNK
  6. SIMVASTATIN [Concomitant]
     Indication: BLOOD CHOLESTEROL INCREASED
     Dosage: UNK
  7. ACETYLSALICYLIC ACID [Concomitant]
     Dosage: UNK
  8. BENICAR [Concomitant]
     Dosage: UNK
  9. LEVOXYL [Concomitant]
     Indication: THYROID DISORDER
     Dosage: UNK

REACTIONS (8)
  - INSOMNIA [None]
  - BACK INJURY [None]
  - SKIN SENSITISATION [None]
  - MALAISE [None]
  - PALPITATIONS [None]
  - FALL [None]
  - EMOTIONAL DISORDER [None]
  - DRUG PRESCRIBING ERROR [None]
